FAERS Safety Report 23626823 (Version 2)
Quarter: 2024Q1

REPORT INFORMATION
  Report Type: Report from Study
  Country: FI (occurrence: FI)
  Receive Date: 20240313
  Receipt Date: 20240320
  Transmission Date: 20240410
  Serious: Yes (Other)
  Sender: FDA-Public Use
  Company Number: FI-MYLANLABS-2024M1022668

PATIENT
  Age: 22 Year
  Sex: Male

DRUGS (3)
  1. CLOZAPINE [Suspect]
     Active Substance: CLOZAPINE
     Indication: Schizophrenia
     Dosage: 225 MILLIGRAM, QD (PER DAY)
     Route: 065
     Dates: start: 202402
  2. CLOZAPINE [Suspect]
     Active Substance: CLOZAPINE
     Dosage: 12.5 MILLIGRAM
     Route: 065
     Dates: start: 20240216
  3. CLOZAPINE [Suspect]
     Active Substance: CLOZAPINE
     Dosage: 250 MILLIGRAM
     Route: 065
     Dates: end: 20240304

REACTIONS (9)
  - Troponin T increased [Recovered/Resolved]
  - Eosinophilic colitis [Recovering/Resolving]
  - C-reactive protein increased [Recovered/Resolved]
  - Amylase increased [Recovered/Resolved]
  - Faecal calprotectin increased [Recovered/Resolved]
  - Leukocytosis [Recovering/Resolving]
  - Diarrhoea [Recovered/Resolved]
  - Eosinophilia [Recovering/Resolving]
  - Neutrophil count increased [Recovered/Resolved]

NARRATIVE: CASE EVENT DATE: 20240301
